FAERS Safety Report 9157212 (Version 2)
Quarter: 2013Q2

REPORT INFORMATION
  Report Type: Spontaneous
  Country: IT (occurrence: IT)
  Receive Date: 20130312
  Receipt Date: 20130422
  Transmission Date: 20140414
  Serious: Yes (Hospitalization)
  Sender: FDA-Public Use
  Company Number: IT-PFIZER INC-2013081253

PATIENT
  Age: 53 Year
  Sex: Female

DRUGS (4)
  1. ADRIBLASTINA [Suspect]
     Indication: BREAST CANCER
     Dosage: 100 MG, CYCLIC
     Route: 042
     Dates: start: 20130121
  2. CYCLOPHOSPHAMIDE [Concomitant]
     Dosage: 1000 MG, UNK
     Route: 042
     Dates: start: 20130304, end: 20130304
  3. DEXAMETHASONE [Concomitant]
     Dosage: 16 MG, UNK
  4. ONDANSETRON HYDROCHLORIDE [Concomitant]
     Dosage: 8 MG, UNK
     Route: 042

REACTIONS (4)
  - Abdominal pain [Recovered/Resolved]
  - Dysaesthesia [Recovered/Resolved]
  - Paraesthesia [Recovered/Resolved]
  - Nasal discomfort [Recovered/Resolved]
